FAERS Safety Report 9819472 (Version 2)
Quarter: 2014Q1

REPORT INFORMATION
  Report Type: Spontaneous
  Country: FR (occurrence: FR)
  Receive Date: 20140115
  Receipt Date: 20140123
  Transmission Date: 20141002
  Serious: Yes (Hospitalization)
  Sender: FDA-Public Use
  Company Number: FR-PFIZER INC-2014007707

PATIENT
  Age: 47 Year
  Sex: Female

DRUGS (2)
  1. ORELOX [Suspect]
     Indication: INFLUENZA
     Dosage: UNK
     Route: 048
     Dates: start: 20130319, end: 20130321
  2. IBUPROFEN [Suspect]
     Indication: INFLUENZA
     Dosage: UNK
     Route: 048
     Dates: start: 20130319, end: 20130321

REACTIONS (2)
  - Meningitis [Recovered/Resolved]
  - Hyperthermia [Recovered/Resolved]
